FAERS Safety Report 9138163 (Version 1)
Quarter: 2013Q1

REPORT INFORMATION
  Report Type: Spontaneous
  Country: US (occurrence: US)
  Receive Date: 20130304
  Receipt Date: 20130304
  Transmission Date: 20140127
  Serious: No
  Sender: FDA-Public Use
  Company Number: US-009507513-1303USA000281

PATIENT
  Age: 17 Year
  Sex: 0

DRUGS (1)
  1. IMPLANON [Suspect]
     Indication: CONTRACEPTION
     Dosage: 1 ROD FOR 3 YEARS ON LEFT ARM
     Dates: start: 20121101

REACTIONS (1)
  - Hypomenorrhoea [Unknown]
